FAERS Safety Report 15704934 (Version 1)
Quarter: 2018Q4

REPORT INFORMATION
  Report Type: Spontaneous
  Country: US (occurrence: US)
  Receive Date: 20181210
  Receipt Date: 20181210
  Transmission Date: 20190205
  Serious: Yes (Other)
  Sender: FDA-Public Use
  Company Number: US-BAYER-2018-223089

PATIENT
  Age: 36 Year
  Sex: Female

DRUGS (1)
  1. MIRENA [Suspect]
     Active Substance: LEVONORGESTREL
     Indication: CONTRACEPTION
     Dosage: 20 MCG/24HR, CONT
     Route: 015
     Dates: start: 20180615, end: 20181129

REACTIONS (5)
  - Jaundice cholestatic [None]
  - Jaundice [None]
  - Pyrexia [None]
  - Rash [None]
  - Hepatic enzyme increased [None]

NARRATIVE: CASE EVENT DATE: 201810
